FAERS Safety Report 10044301 (Version 3)
Quarter: 2014Q2

REPORT INFORMATION
  Report Type: Report from Study
  Country: FR (occurrence: FR)
  Receive Date: 20140328
  Receipt Date: 20140407
  Transmission Date: 20141212
  Serious: Yes (Death, Other)
  Sender: FDA-Public Use
  Company Number: FR-SANOFI-AVENTIS-2010SA035839

PATIENT
  Age: 69 Year
  Sex: Female
  Weight: 79 kg

DRUGS (6)
  1. DOCETAXEL [Suspect]
     Indication: BREAST CANCER
     Route: 042
     Dates: start: 20081030, end: 20081030
  2. DOCETAXEL [Suspect]
     Indication: BREAST CANCER
     Route: 042
     Dates: start: 20090212, end: 20090212
  3. XELODA [Suspect]
     Indication: BREAST CANCER
     Route: 048
     Dates: start: 20081030, end: 20090227
  4. FEMARA [Suspect]
     Indication: BREAST CANCER
     Route: 048
     Dates: start: 20090420, end: 20091123
  5. TAHOR [Concomitant]
     Indication: HYPERCHOLESTEROLAEMIA
     Route: 048
  6. VEINAMITOL [Concomitant]
     Route: 048

REACTIONS (3)
  - Acute myeloid leukaemia [Fatal]
  - Neutropenia [Fatal]
  - Anaemia [Fatal]
